FAERS Safety Report 7183202-3 (Version None)
Quarter: 2010Q4

REPORT INFORMATION
  Report Type: 
  Country: None (occurrence: None)
  Receive Date: 20101222
  Receipt Date: 20100114
  Transmission Date: 20110411
  Serious: No
  Sender: FDA-Public Use
  Company Number: A0815088A

PATIENT
  Sex: Male

DRUGS (3)
  1. FLOVENT [Suspect]
     Dosage: 2PUFF AS REQUIRED
     Route: 055
     Dates: start: 20060101
  2. PROVENTIL [Concomitant]
  3. CARDIZEM [Concomitant]

REACTIONS (2)
  - DRUG INEFFECTIVE [None]
  - PRODUCT QUALITY ISSUE [None]
